FAERS Safety Report 15809852 (Version 1)
Quarter: 2019Q1

REPORT INFORMATION
  Report Type: Spontaneous
  Country: US (occurrence: US)
  Receive Date: 20190111
  Receipt Date: 20190111
  Transmission Date: 20190417
  Serious: No
  Sender: FDA-Public Use
  Company Number: US-ROCHE-2098317

PATIENT
  Age: 18 Year
  Sex: Female
  Weight: 52.21 kg

DRUGS (3)
  1. PLASMA EXCHANGE [Concomitant]
     Active Substance: ALBUMIN HUMAN
     Indication: THROMBOTIC THROMBOCYTOPENIC PURPURA
     Route: 065
     Dates: start: 201801
  2. RITUXAN [Suspect]
     Active Substance: RITUXIMAB
     Indication: THROMBOTIC THROMBOCYTOPENIC PURPURA
     Dosage: 4 DOSES, EACH DOSE, ONE WEEK APART ;ONGOING: UNKNOWN
     Route: 065
     Dates: start: 20180122
  3. PREDNISONE. [Concomitant]
     Active Substance: PREDNISONE
     Indication: THROMBOTIC THROMBOCYTOPENIC PURPURA
     Dosage: DOSE IS TAPERING DOWN
     Route: 065
     Dates: start: 201801

REACTIONS (3)
  - Platelet count decreased [Not Recovered/Not Resolved]
  - Off label use [Unknown]
  - Intentional product use issue [Unknown]

NARRATIVE: CASE EVENT DATE: 20180122
